FAERS Safety Report 16993371 (Version 1)
Quarter: 2019Q4

REPORT INFORMATION
  Report Type: Spontaneous
  Country: US (occurrence: US)
  Receive Date: 20191104
  Receipt Date: 20191104
  Transmission Date: 20200122
  Serious: Yes (Other)
  Sender: FDA-Public Use
  Company Number: None

PATIENT
  Age: 47 Year
  Sex: Female

DRUGS (8)
  1. ADDERALL XR CAP 30 MG [Concomitant]
  2. DULOXETINE CAP 30 MG [Concomitant]
  3. DALFAMPRIDINE. [Suspect]
     Active Substance: DALFAMPRIDINE
     Indication: MULTIPLE SCLEROSIS
     Route: 048
     Dates: start: 20181104
  4. ONDANSETRON POW HCL [Concomitant]
  5. BACLOFEN TAB 20 MG [Concomitant]
  6. GLATIRAMER [Suspect]
     Active Substance: GLATIRAMER
     Indication: MULTIPLE SCLEROSIS
     Route: 058
     Dates: start: 20181104
  7. DIAZEPAM TAB 10 MG [Concomitant]
  8. HYDROCODONE POW BITARTRA [Concomitant]

REACTIONS (1)
  - Fall [None]
